FAERS Safety Report 9086638 (Version 1)
Quarter: 2013Q1

REPORT INFORMATION
  Report Type: Other
  Country: GB (occurrence: GB)
  Receive Date: 20130131
  Receipt Date: 20130131
  Transmission Date: 20140127
  Serious: Yes (Hospitalization, Other)
  Sender: FDA-Public Use
  Company Number: GB-WATSON-2013-01437

PATIENT
  Age: 24 Year
  Sex: Male
  Weight: 89 kg

DRUGS (3)
  1. DISULFIRAM [Suspect]
     Indication: ALCOHOL ABUSE
     Dosage: 600 MG, UNKNOWN
     Route: 048
     Dates: end: 20121127
  2. ZOPICLONE [Concomitant]
     Indication: PRODUCT USED FOR UNKNOWN INDICATION
     Dosage: 7.5 MG, WHEN NECCESSARY AT NIGHT
     Route: 065
  3. PROMETHAZINE HYDROCHLORIDE [Concomitant]
     Indication: PRODUCT USED FOR UNKNOWN INDICATION
     Dosage: UNKNOWN
     Route: 065

REACTIONS (11)
  - Myocardial ischaemia [Unknown]
  - Electrocardiogram T wave inversion [Unknown]
  - Alcohol interaction [Unknown]
  - Nausea [Unknown]
  - Vomiting [Unknown]
  - Chest discomfort [Unknown]
  - Anxiety [Unknown]
  - Flushing [Unknown]
  - Troponin increased [Unknown]
  - Chest pain [Not Recovered/Not Resolved]
  - Electrocardiogram T wave abnormal [Unknown]
